FAERS Safety Report 4729945-X (Version None)
Quarter: 2005Q3

REPORT INFORMATION
  Report Type: 
  Country: None (occurrence: None)
  Receive Date: 20050801
  Receipt Date: 20050503
  Transmission Date: 20060218
  Serious: Yes (Other)
  Sender: FDA-Public Use
  Company Number: US-BRISTOL-MYERS SQUIBB COMPANY-12959243

PATIENT
  Age: 38 Year
  Sex: Male

DRUGS (11)
  1. ERBITUX [Suspect]
     Indication: TONSIL CANCER
     Dosage: 788 MG.
     Route: 042
     Dates: start: 20050427, end: 20050427
  2. CISPLATIN [Concomitant]
     Route: 042
  3. DEXAMETHASONE [Concomitant]
  4. DIPHENHYDRAMINE HCL [Concomitant]
     Route: 048
  5. DIPHENHYDRAMINE HCL [Concomitant]
     Route: 042
  6. EMEND [Concomitant]
  7. FAMOTIDINE [Concomitant]
  8. GRANISETRON [Concomitant]
  9. HYDROCORTISONE [Concomitant]
  10. LORATADINE [Concomitant]
  11. RADIATION THERAPY [Concomitant]

REACTIONS (6)
  - ABDOMINAL PAIN [None]
  - DYSPNOEA [None]
  - FLUSHING [None]
  - MUSCLE SPASMS [None]
  - OEDEMA [None]
  - OXYGEN SATURATION ABNORMAL [None]
